FAERS Safety Report 21279497 (Version 1)
Quarter: 2022Q3

REPORT INFORMATION
  Report Type: Spontaneous
  Country: IT (occurrence: None)
  Receive Date: 20220901
  Receipt Date: 20220901
  Transmission Date: 20221027
  Serious: Yes (Life-Threatening, Other)
  Sender: FDA-Public Use
  Company Number: IT-ADIENNEP-2022AD000679

PATIENT
  Age: 49 Year
  Sex: Female

DRUGS (1)
  1. THIOTEPA [Suspect]
     Active Substance: THIOTEPA
     Indication: Autologous haematopoietic stem cell transplant

REACTIONS (4)
  - Stomatitis [Unknown]
  - Staphylococcal sepsis [Recovered/Resolved]
  - Pyrexia [Recovered/Resolved]
  - Human herpesvirus 6 infection [Unknown]
